FAERS Safety Report 14122084 (Version 3)
Quarter: 2018Q2

REPORT INFORMATION
  Report Type: Spontaneous
  Country: GR (occurrence: GR)
  Receive Date: 20171024
  Receipt Date: 20180511
  Transmission Date: 20180711
  Serious: Yes (Hospitalization, Other)
  Sender: FDA-Public Use
  Company Number: GR-CELGENEUS-GRC-20171004823

PATIENT
  Age: 66 Year
  Sex: Male

DRUGS (14)
  1. REVLIMID [Suspect]
     Active Substance: LENALIDOMIDE
     Route: 048
     Dates: start: 201406, end: 201511
  2. DEXAMETHASONE. [Suspect]
     Active Substance: DEXAMETHASONE
     Route: 065
  3. ELOTUZUMAB. [Suspect]
     Active Substance: ELOTUZUMAB
     Indication: PLASMA CELL MYELOMA
     Route: 041
     Dates: end: 201511
  4. DEXAMETHASONE. [Suspect]
     Active Substance: DEXAMETHASONE
     Route: 065
     Dates: start: 201406, end: 201511
  5. REVLIMID [Suspect]
     Active Substance: LENALIDOMIDE
     Indication: PLASMA CELL MYELOMA
     Route: 048
     Dates: end: 201405
  6. ELOTUZUMAB. [Suspect]
     Active Substance: ELOTUZUMAB
     Route: 041
  7. DEXAMETHASONE. [Suspect]
     Active Substance: DEXAMETHASONE
     Indication: PLASMA CELL MYELOMA
     Route: 065
     Dates: end: 201405
  8. REVLIMID [Suspect]
     Active Substance: LENALIDOMIDE
     Route: 048
  9. REVLIMID [Suspect]
     Active Substance: LENALIDOMIDE
     Route: 048
  10. DEXAMETHASONE. [Suspect]
     Active Substance: DEXAMETHASONE
     Dosage: 40 MILLIGRAM
     Route: 048
     Dates: end: 201405
  11. ELOTUZUMAB. [Suspect]
     Active Substance: ELOTUZUMAB
     Route: 065
     Dates: end: 201405
  12. ELOTUZUMAB. [Suspect]
     Active Substance: ELOTUZUMAB
     Route: 041
  13. ELOTUZUMAB. [Suspect]
     Active Substance: ELOTUZUMAB
     Route: 065
  14. ELOTUZUMAB. [Suspect]
     Active Substance: ELOTUZUMAB
     Route: 065
     Dates: start: 201406

REACTIONS (2)
  - Febrile neutropenia [Recovered/Resolved]
  - Visceral leishmaniasis [Recovered/Resolved]

NARRATIVE: CASE EVENT DATE: 201511
